FAERS Safety Report 4853630-7 (Version None)
Quarter: 2005Q4

REPORT INFORMATION
  Report Type: 
  Country: None (occurrence: None)
  Receive Date: 20051214
  Receipt Date: 20051207
  Transmission Date: 20060501
  Serious: Yes (Hospitalization)
  Sender: FDA-Public Use
  Company Number: 2005AP06371

PATIENT
  Age: 48 Year
  Sex: Male

DRUGS (13)
  1. CRESTOR [Suspect]
     Indication: HYPERCHOLESTEROLAEMIA
     Route: 048
     Dates: start: 20050906, end: 20051114
  2. ARTIST [Concomitant]
     Route: 048
  3. MICARDIS [Concomitant]
     Route: 048
  4. ALDACTONE [Concomitant]
     Route: 048
  5. GOSHA-JINKI-GAN [Concomitant]
     Route: 048
  6. LASIX [Concomitant]
     Route: 048
  7. ZYLORIC [Concomitant]
     Route: 048
  8. WARFARIN SODIUM [Concomitant]
     Route: 048
  9. EURODIN [Concomitant]
     Route: 048
  10. BEPRICOR [Concomitant]
     Route: 048
  11. DORNER [Concomitant]
     Route: 048
  12. BASEN [Concomitant]
     Route: 048
  13. ACARDI [Concomitant]
     Route: 048

REACTIONS (5)
  - ALANINE AMINOTRANSFERASE INCREASED [None]
  - ASPARTATE AMINOTRANSFERASE INCREASED [None]
  - BLOOD CREATINE PHOSPHOKINASE INCREASED [None]
  - GASTROINTESTINAL HAEMORRHAGE [None]
  - LIVER DISORDER [None]
